FAERS Safety Report 21565705 (Version 1)
Quarter: 2022Q4

REPORT INFORMATION
  Report Type: Report from Study
  Country: US (occurrence: US)
  Receive Date: 20221108
  Receipt Date: 20221108
  Transmission Date: 20230113
  Serious: Yes (Hospitalization, Other)
  Sender: FDA-Public Use
  Company Number: US-BoehringerIngelheim-2020-MR-039834

PATIENT
  Age: 80 Year
  Sex: Male

DRUGS (1)
  1. OFEV [Suspect]
     Active Substance: NINTEDANIB
     Indication: Idiopathic pulmonary fibrosis
     Route: 048
     Dates: start: 20200319

REACTIONS (9)
  - Influenza [Unknown]
  - Fall [Unknown]
  - Musculoskeletal disorder [Unknown]
  - Cardiac failure [Unknown]
  - Atrial fibrillation [Unknown]
  - Rectal haemorrhage [Unknown]
  - Pulmonary thrombosis [Unknown]
  - Swelling [Unknown]
  - Gait inability [Unknown]

NARRATIVE: CASE EVENT DATE: 20220101
